FAERS Safety Report 8426914-3 (Version None)
Quarter: 2012Q2

REPORT INFORMATION
  Report Type: 
  Country: None (occurrence: None)
  Receive Date: 20120323
  Receipt Date: 20110826
  Transmission Date: 20120825
  Serious: Yes (Other)
  Sender: FDA-Public Use
  Company Number: 163-21880-11043604

PATIENT
  Age: 74 Year
  Sex: Male
  Weight: 63.5 kg

DRUGS (3)
  1. REVLIMID [Suspect]
     Indication: MULTIPLE MYELOMA
     Dosage: 25 ,G. 1 IN 1 D, PO; 5 MG, 1 IN 1 D, PO
     Route: 048
     Dates: start: 20100501, end: 20100901
  2. REVLIMID [Suspect]
     Indication: MULTIPLE MYELOMA
     Dosage: 25 ,G. 1 IN 1 D, PO; 5 MG, 1 IN 1 D, PO
     Route: 048
     Dates: start: 20101202
  3. REVLIMID [Suspect]
     Indication: MULTIPLE MYELOMA
     Dosage: 15 MG, 1 IN 1 D, PO
     Route: 048
     Dates: start: 20100428

REACTIONS (1)
  - NEUTROPENIA [None]
